FAERS Safety Report 5097040-9 (Version None)
Quarter: 2006Q3

REPORT INFORMATION
  Report Type: 
  Country: None (occurrence: None)
  Receive Date: 20060901
  Receipt Date: 20060818
  Transmission Date: 20061208
  Serious: Yes (Hospitalization)
  Sender: FDA-Public Use
  Company Number: 2006101761

PATIENT
  Age: 8 Year
  Sex: Male

DRUGS (8)
  1. PHENYTOIN SODIUM [Suspect]
     Indication: DRUG USE FOR UNKNOWN INDICATION
     Dosage: 150 MG (FREQUENCY:  DAY), ORAL
     Route: 048
     Dates: start: 20060428
  2. ETOPOSIDE [Suspect]
     Indication: DRUG USE FOR UNKNOWN INDICATION
     Dosage: 1 DF, ORAL
     Route: 048
     Dates: start: 20060605, end: 20060608
  3. CYCLOPHOSPHAMIDE [Suspect]
     Indication: DRUG USE FOR UNKNOWN INDICATION
     Dosage: 50 MG (DAY), ORAL
     Route: 048
     Dates: start: 20060509, end: 20060529
  4. CELEBREX [Suspect]
     Indication: DRUG USE FOR UNKNOWN INDICATION
     Dosage: 100 MG (DAY), ORAL
     Route: 048
     Dates: start: 20060509
  5. CARBAMAZEPINE [Suspect]
     Indication: DRUG USE FOR UNKNOWN INDICATION
     Dosage: 400 MG (DAY), ORAL
     Route: 048
     Dates: start: 20060428
  6. OMEPRAZOLE [Suspect]
     Indication: DRUG USE FOR UNKNOWN INDICATION
     Dosage: 20 MG (UDAY),
  7. SOLUPRED (PREDNISOLONE SODIUM SULFOBENZOATE) [Concomitant]
  8. CLONAZEPAM [Concomitant]

REACTIONS (2)
  - ASPERGILLOSIS [None]
  - PNEUMONIA [None]
